FAERS Safety Report 8348072-6 (Version None)
Quarter: 2012Q2

REPORT INFORMATION
  Report Type: 
  Country: None (occurrence: None)
  Receive Date: 20120509
  Receipt Date: 20120430
  Transmission Date: 20120825
  Serious: Yes (Hospitalization, Other)
  Sender: FDA-Public Use
  Company Number: US-ELI_LILLY_AND_COMPANY-US201205000704

PATIENT
  Sex: Female

DRUGS (2)
  1. PLAVIX [Concomitant]
     Dosage: UNK
  2. HUMULIN N [Suspect]
     Indication: TYPE 2 DIABETES MELLITUS
     Dosage: UNK UNK, PRN
     Dates: start: 20040101

REACTIONS (18)
  - EYE IRRITATION [None]
  - GLAUCOMA [None]
  - MIGRAINE [None]
  - EYE OPERATION [None]
  - DRY EYE [None]
  - NERVOUSNESS [None]
  - INCORRECT DOSE ADMINISTERED [None]
  - WEIGHT DECREASED [None]
  - OESOPHAGEAL DISORDER [None]
  - BLINDNESS UNILATERAL [None]
  - EYE PAIN [None]
  - BLOOD GLUCOSE DECREASED [None]
  - ABNORMAL DREAMS [None]
  - EYE PRURITUS [None]
  - WRONG TECHNIQUE IN DRUG USAGE PROCESS [None]
  - BLOOD GLUCOSE INCREASED [None]
  - POLYPECTOMY [None]
  - DRUG DOSE OMISSION [None]
